FAERS Safety Report 5902902-3 (Version None)
Quarter: 2008Q3

REPORT INFORMATION
  Report Type: 
  Country: None (occurrence: None)
  Receive Date: 20080930
  Receipt Date: 20080922
  Transmission Date: 20090109
  Serious: Yes (Other)
  Sender: FDA-Public Use
  Company Number: PHBS2007JP20595

PATIENT
  Sex: Female

DRUGS (6)
  1. ZOMETA [Suspect]
     Indication: BREAST CANCER METASTATIC
     Dosage: UNK
     Route: 042
     Dates: start: 20060920
  2. AREDIA [Suspect]
     Indication: METASTASES TO BONE
     Dosage: UNK
     Dates: start: 20050303, end: 20060823
  3. XELODA [Concomitant]
     Dosage: 2400 MG, UNK
     Dates: start: 20070501
  4. BISPHOSPHONATES [Concomitant]
     Indication: BREAST CANCER METASTATIC
  5. HORMONES [Concomitant]
     Indication: BREAST CANCER METASTATIC
  6. HYSRON [Concomitant]
     Dosage: 1200 MG, UNK
     Route: 048
     Dates: start: 20050303, end: 20050810

REACTIONS (5)
  - FISTULA [None]
  - HAEMATOCRIT DECREASED [None]
  - HAEMOGLOBIN DECREASED [None]
  - OSTEOMYELITIS [None]
  - RED BLOOD CELL COUNT DECREASED [None]
